FAERS Safety Report 9708567 (Version 1)
Quarter: 2013Q4

REPORT INFORMATION
  Report Type: Spontaneous
  Country: US (occurrence: None)
  Receive Date: 20131121
  Receipt Date: 20131121
  Transmission Date: 20140711
  Serious: No
  Sender: FDA-Public Use
  Company Number: 13AE027

PATIENT
  Sex: Male

DRUGS (2)
  1. ACETAMINOPHEN 250 MG/ASPIRIN 250 MG/ CAFFEINE 65 MG FILM COATED WHITE CAPSULES [Suspect]
     Indication: HEADACHE
     Dosage: 250 MG/ASPIRIN 250 MG / CAFFEINE 65 MG FILM COATED WHITE CAPLETS 1 WEEK (DATES UNKNOWN)
     Route: 048
  2. TOPIRAMATE (TOPOMAX) [Concomitant]

REACTIONS (2)
  - Abdominal pain [None]
  - Product odour abnormal [None]
